FAERS Safety Report 8243361-8 (Version None)
Quarter: 2012Q1

REPORT INFORMATION
  Report Type: 
  Country: None (occurrence: None)
  Receive Date: 20120329
  Receipt Date: 20120321
  Transmission Date: 20120608
  Serious: Yes (Other)
  Sender: FDA-Public Use
  Company Number: US-ELI_LILLY_AND_COMPANY-US201203007048

PATIENT
  Sex: Male

DRUGS (2)
  1. HUMALOG MIX 75/25 [Suspect]
     Dosage: 15 U, EACH EVENING
  2. HUMALOG MIX 75/25 [Suspect]
     Dosage: 30 U, EACH MORNING

REACTIONS (3)
  - DRUG DOSE OMISSION [None]
  - TOE AMPUTATION [None]
  - INCORRECT DOSE ADMINISTERED [None]
